FAERS Safety Report 23031971 (Version 2)
Quarter: 2023Q4

REPORT INFORMATION
  Report Type: Report from Study
  Country: AE (occurrence: AE)
  Receive Date: 20231005
  Receipt Date: 20231024
  Transmission Date: 20240109
  Serious: Yes (Other)
  Sender: FDA-Public Use
  Company Number: AE-AMGEN-ARESL2023174090

PATIENT
  Age: 67 Year
  Sex: Female

DRUGS (2)
  1. KANJINTI [Suspect]
     Active Substance: TRASTUZUMAB-ANNS
     Indication: Breast cancer metastatic
     Dosage: 420 MILLIGRAM, Q3WK
     Route: 065
     Dates: start: 20221201
  2. VERZENIO [Concomitant]
     Active Substance: ABEMACICLIB
     Dosage: 150 MILLIGRAM, Q12H

REACTIONS (2)
  - Mastitis [Not Recovered/Not Resolved]
  - Breast haemorrhage [Not Recovered/Not Resolved]

NARRATIVE: CASE EVENT DATE: 20230928
